FAERS Safety Report 4683387-4 (Version None)
Quarter: 2005Q2

REPORT INFORMATION
  Report Type: 
  Country: None (occurrence: None)
  Receive Date: 20050606
  Receipt Date: 20050606
  Transmission Date: 20051028
  Serious: No
  Sender: FDA-Public Use
  Company Number: None

PATIENT

DRUGS (3)
  1. SUDAFED PE [Suspect]
     Dosage: TABLET
  2. ROBITUSSIN PE [Suspect]
     Dosage: LIQUID (30 MG PSEUDOEPHEDRINE AND 100 MG GUALIFENESIN PER 5 ML)
  3. TUSSIN PE [Suspect]
     Dosage: LIQUID (30 MG PSEUDOSEPHEDRINE AND 100 MG GUAIFENESIN)

REACTIONS (1)
  - MEDICATION ERROR [None]
